FAERS Safety Report 8440178-6 (Version None)
Quarter: 2012Q2

REPORT INFORMATION
  Report Type: 
  Country: None (occurrence: None)
  Receive Date: 20120615
  Receipt Date: 20120607
  Transmission Date: 20120825
  Serious: Yes (Other)
  Sender: FDA-Public Use
  Company Number: US-ROCHE-1034519

PATIENT
  Sex: Female
  Weight: 79.904 kg

DRUGS (14)
  1. METHOTREXATE [Concomitant]
  2. PREDNISONE TAB [Concomitant]
     Dosage: PREDNISOLONE ACETATE 1%
  3. PREDNISONE TAB [Concomitant]
  4. ACTEMRA [Suspect]
     Dosage: DOSE INCREASED
  5. WELLBUTRIN [Concomitant]
  6. FLUOXETINE [Concomitant]
  7. VICODIN [Concomitant]
     Indication: PAIN
  8. ASPIRIN [Concomitant]
  9. LEUCOVORIN CALCIUM [Concomitant]
  10. LEVOTHYROXINE SODIUM [Concomitant]
  11. ACTEMRA [Suspect]
     Indication: RHEUMATOID ARTHRITIS
     Route: 042
     Dates: start: 20120112
  12. LIPITOR [Concomitant]
  13. LORAZEPAM [Concomitant]
     Indication: ANXIETY
  14. PROZAC [Concomitant]

REACTIONS (3)
  - WHITE BLOOD CELL COUNT DECREASED [None]
  - ULCERATIVE KERATITIS [None]
  - DERMATITIS [None]
